FAERS Safety Report 15811905 (Version 1)
Quarter: 2019Q1

REPORT INFORMATION
  Report Type: Spontaneous
  Country: US (occurrence: US)
  Receive Date: 20190108
  Receipt Date: 20190108
  Transmission Date: 20190417
  Serious: No
  Sender: FDA-Public Use
  Company Number: None

PATIENT

DRUGS (4)
  1. HUMULIN R U-500 [Suspect]
     Active Substance: INSULIN HUMAN
  2. INSULIN GLARGINE 100 UNITS/ML [Suspect]
     Active Substance: INSULIN GLARGINE
  3. INSULIN REGULAR U-100 [Suspect]
     Active Substance: INSULIN NOS
  4. INSULIN GLARGINE 300 UNITS/ML [Suspect]
     Active Substance: INSULIN GLARGINE

REACTIONS (1)
  - Product name confusion [None]
